FAERS Safety Report 15282056 (Version 2)
Quarter: 2018Q4

REPORT INFORMATION
  Report Type: Spontaneous
  Country: US (occurrence: US)
  Receive Date: 20180815
  Receipt Date: 20181026
  Transmission Date: 20190204
  Serious: No
  Sender: FDA-Public Use
  Company Number: US-VIFOR (INTERNATIONAL) INC.-VIT-2016-06959

PATIENT
  Sex: Male
  Weight: 78 kg

DRUGS (17)
  1. PANTOPRAZOLE SODIUM. [Concomitant]
     Active Substance: PANTOPRAZOLE SODIUM
  2. VITAMIN D [Concomitant]
     Active Substance: CHOLECALCIFEROL
  3. HEPARIN SODIUM PORCINE [Concomitant]
     Active Substance: HEPARIN SODIUM
  4. PROMETHAZINE HCL [Concomitant]
     Active Substance: PROMETHAZINE HYDROCHLORIDE
  5. LISINOPRIL. [Concomitant]
     Active Substance: LISINOPRIL
  6. CALCITRIOL. [Concomitant]
     Active Substance: CALCITRIOL
  7. TYLENOL [Concomitant]
     Active Substance: ACETAMINOPHEN
  8. METAMUCIL [Concomitant]
     Active Substance: PLANTAGO SEED
  9. DIALYVITE [Concomitant]
     Active Substance: ASCORBIC ACID\BIOTIN\CALCIUM PANTOTHENATE\COBALAMIN\FOLIC ACID\NIACINAMIDE\PYRIDOXINE HYDROCHLORIDE\RIBOFLAVIN\THIAMINE MONONITRATE
  10. VELTASSA [Suspect]
     Active Substance: PATIROMER
     Indication: HYPERKALAEMIA
     Route: 048
     Dates: start: 20160316
  11. TUMS [Concomitant]
     Active Substance: CALCIUM CARBONATE
  12. ASPIRIN. [Concomitant]
     Active Substance: ASPIRIN
  13. VITAMIN D3 [Concomitant]
     Active Substance: CHOLECALCIFEROL
  14. EPOGEN [Concomitant]
     Active Substance: ERYTHROPOIETIN
  15. LYRICA [Concomitant]
     Active Substance: PREGABALIN
  16. TRAZODONE HYDROCHLORIDE. [Concomitant]
     Active Substance: TRAZODONE HYDROCHLORIDE
  17. PROPRANOLOL/HCTZ [Concomitant]

REACTIONS (1)
  - Blood potassium increased [Unknown]

NARRATIVE: CASE EVENT DATE: 2016
